FAERS Safety Report 9937625 (Version 1)
Quarter: 2014Q1

REPORT INFORMATION
  Report Type: Spontaneous
  Country: CH (occurrence: CH)
  Receive Date: 20140303
  Receipt Date: 20140303
  Transmission Date: 20141002
  Serious: Yes (Other)
  Sender: FDA-Public Use
  Company Number: CH-ROCHE-1351913

PATIENT
  Age: 40 Year
  Sex: Female
  Weight: 87 kg

DRUGS (1)
  1. HERCEPTIN [Suspect]
     Indication: BREAST CANCER
     Dosage: AS MONOTHERAPY SINCE/SEP/2013?LAST DOSE TAKEN: 20/JAN/2014
     Route: 041
     Dates: start: 20130408

REACTIONS (4)
  - Staphylococcal abscess [Recovered/Resolved]
  - Abscess [Recovering/Resolving]
  - Cellulitis [Unknown]
  - Palmar-plantar erythrodysaesthesia syndrome [Unknown]
